FAERS Safety Report 10706254 (Version 1)
Quarter: 2015Q1

REPORT INFORMATION
  Report Type: Spontaneous
  Country: US (occurrence: None)
  Receive Date: 20150109
  Receipt Date: 20150109
  Transmission Date: 20150721
  Serious: Yes (Death)
  Sender: FDA-Public Use
  Company Number: None

PATIENT
  Age: 78 Year
  Sex: Female
  Weight: 56.8 kg

DRUGS (1)
  1. MOBIC [Suspect]
     Active Substance: MELOXICAM
     Indication: FRACTURE PAIN
     Route: 048
     Dates: start: 20141116

REACTIONS (3)
  - Refusal of treatment by patient [None]
  - Haematochezia [None]
  - Duodenal ulcer [None]

NARRATIVE: CASE EVENT DATE: 20141208
